FAERS Safety Report 23288216 (Version 1)
Quarter: 2023Q4

REPORT INFORMATION
  Report Type: Other
  Country: None (occurrence: CZ)
  Receive Date: 20231212
  Receipt Date: 20231212
  Transmission Date: 20240110
  Serious: Yes (Life-Threatening, Hospitalization, Other)
  Sender: FDA-Public Use
  Company Number: CZ-B.Braun Medical Inc.-2149256

PATIENT
  Age: 51 Year
  Sex: Female

DRUGS (15)
  1. ACETAMINOPHEN [Suspect]
     Active Substance: ACETAMINOPHEN
  2. CODEINE [Suspect]
     Active Substance: CODEINE
  3. LEVOFLOXACIN [Suspect]
     Active Substance: LEVOFLOXACIN
  4. METOCLOPRAMIDE [Suspect]
     Active Substance: METOCLOPRAMIDE
  5. PAROXETINE [Suspect]
     Active Substance: PAROXETINE
  6. SUFENTANIL [Suspect]
     Active Substance: SUFENTANIL
  7. TRAMADOL [Suspect]
     Active Substance: TRAMADOL\TRAMADOL HYDROCHLORIDE
  8. TRAZODONE [Suspect]
     Active Substance: TRAZODONE HYDROCHLORIDE
  9. BROMAZEPAM [Concomitant]
     Active Substance: BROMAZEPAM
  10. BUDESONIDE [Concomitant]
     Active Substance: BUDESONIDE
  11. CHLORPROTHIXENE HYDROCHLORIDE [Concomitant]
     Active Substance: CHLORPROTHIXENE HYDROCHLORIDE
  12. INDOMETHACIN [Concomitant]
     Active Substance: INDOMETHACIN
  13. IVABRADINE [Concomitant]
     Active Substance: IVABRADINE
  14. MELOXICAM [Concomitant]
     Active Substance: MELOXICAM
  15. MIDAZOLAM [Concomitant]
     Active Substance: MIDAZOLAM

REACTIONS (24)
  - Leukocytosis [None]
  - Delirium [None]
  - Oliguria [None]
  - Pyrexia [None]
  - Tremor [None]
  - Mydriasis [None]
  - Myoglobin blood increased [None]
  - Serotonin syndrome [None]
  - Sinus tachycardia [None]
  - Drug interaction [None]
  - Arthralgia [None]
  - Metabolic acidosis [None]
  - Myoclonus [None]
  - Tachycardia [None]
  - Hypertension [None]
  - Circulatory collapse [None]
  - Pneumonia fungal [None]
  - Restlessness [None]
  - Hyperhidrosis [None]
  - Dyspnoea [None]
  - Depressed level of consciousness [None]
  - Agitation [None]
  - Drug ineffective [None]
  - Muscle spasms [None]
